FAERS Safety Report 7631475-2 (Version None)
Quarter: 2011Q3

REPORT INFORMATION
  Report Type: 
  Country: None (occurrence: None)
  Receive Date: 20110725
  Receipt Date: 20110718
  Transmission Date: 20111222
  Serious: Yes (Hospitalization)
  Sender: FDA-Public Use
  Company Number: PHHY2011TR65200

PATIENT
  Age: 10 Year
  Sex: Male
  Weight: 60 kg

DRUGS (2)
  1. ATOMOXETINE HCL [Suspect]
     Dosage: 60 MG, UNK
  2. ATOMOXETINE HCL [Suspect]
     Indication: ATTENTION DEFICIT/HYPERACTIVITY DISORDER
     Dosage: 40 MG, UNK

REACTIONS (18)
  - HEADACHE [None]
  - SOMNOLENCE [None]
  - DECREASED APPETITE [None]
  - ACUTE HEPATIC FAILURE [None]
  - ABDOMINAL PAIN [None]
  - UNRESPONSIVE TO STIMULI [None]
  - LIVER INJURY [None]
  - INTERNATIONAL NORMALISED RATIO INCREASED [None]
  - VOMITING [None]
  - HEPATIC HAEMORRHAGE [None]
  - PYREXIA [None]
  - JAUNDICE [None]
  - CHOLESTASIS [None]
  - OCULAR ICTERUS [None]
  - HEPATIC ENCEPHALOPATHY [None]
  - FATIGUE [None]
  - HEPATIC NECROSIS [None]
  - STUPOR [None]
